FAERS Safety Report 9268579 (Version 1)
Quarter: 2013Q2

REPORT INFORMATION
  Report Type: Spontaneous
  Country: US (occurrence: US)
  Receive Date: 20130502
  Receipt Date: 20130502
  Transmission Date: 20140414
  Serious: Yes (Hospitalization)
  Sender: FDA-Public Use
  Company Number: CHPA2013US007235

PATIENT
  Age: 72 Year
  Sex: Female

DRUGS (8)
  1. MAALOX ANTACID/ANTIGAS MAX QDTABS ASST [Suspect]
     Indication: GASTROOESOPHAGEAL REFLUX DISEASE
     Dosage: 1-2 DF, PRN
     Route: 048
     Dates: start: 2009, end: 201303
  2. MAALOX ANTACID/ANTIGAS MAX QDTABS ASST [Suspect]
     Indication: ERUCTATION
  3. MAALOX ANTACID/ANTIGAS MAX QDTABS ASST [Suspect]
     Indication: FLATULENCE
  4. MAALOX ANTACID/ANTIGAS MAX QDTABS ASST [Suspect]
     Indication: IRRITABLE BOWEL SYNDROME
  5. NEXIUM//ESOMEPRAZOLE SODIUM [Concomitant]
     Indication: GASTROOESOPHAGEAL REFLUX DISEASE
  6. NEXIUM//ESOMEPRAZOLE SODIUM [Concomitant]
     Indication: ERUCTATION
  7. NEXIUM//ESOMEPRAZOLE SODIUM [Concomitant]
     Indication: FLATULENCE
  8. NEXIUM//ESOMEPRAZOLE SODIUM [Concomitant]
     Indication: IRRITABLE BOWEL SYNDROME

REACTIONS (4)
  - Osteoarthritis [Not Recovered/Not Resolved]
  - Vision blurred [Recovered/Resolved]
  - Mental impairment [Not Recovered/Not Resolved]
  - Off label use [Unknown]
